FAERS Safety Report 11145482 (Version 1)
Quarter: 2015Q2

REPORT INFORMATION
  Report Type: Spontaneous
  Country: US (occurrence: None)
  Receive Date: 20150527
  Receipt Date: 20150527
  Transmission Date: 20150821
  Serious: Yes (Hospitalization)
  Sender: FDA-Public Use
  Company Number: None

PATIENT
  Age: 71 Year
  Sex: Female

DRUGS (20)
  1. PREDNISONE. [Concomitant]
     Active Substance: PREDNISONE
  2. ARANESP [Concomitant]
     Active Substance: DARBEPOETIN ALFA
  3. ULORIC [Concomitant]
     Active Substance: FEBUXOSTAT
  4. K DUR [Concomitant]
  5. IMDUR [Concomitant]
     Active Substance: ISOSORBIDE MONONITRATE
  6. SYNTHROID [Concomitant]
     Active Substance: LEVOTHYROXINE SODIUM
  7. LANTUS [Concomitant]
     Active Substance: INSULIN GLARGINE
  8. ASPIRIN. [Concomitant]
     Active Substance: ASPIRIN
  9. ENDOCET [Concomitant]
     Active Substance: ACETAMINOPHEN\OXYCODONE HYDROCHLORIDE
  10. VITAMIN C [Concomitant]
     Active Substance: ASCORBIC ACID
  11. COREG [Concomitant]
     Active Substance: CARVEDILOL
  12. TOVIAZ [Concomitant]
     Active Substance: FESOTERODINE FUMARATE
  13. XARELTO [Concomitant]
     Active Substance: RIVAROXABAN
  14. ZOCOR [Concomitant]
     Active Substance: SIMVASTATIN
  15. HUMALOG [Concomitant]
     Active Substance: INSULIN LISPRO
  16. LASIX [Concomitant]
     Active Substance: FUROSEMIDE
  17. ZAROXOLYN [Concomitant]
     Active Substance: METOLAZONE
  18. SENNA [Concomitant]
     Active Substance: SENNA LEAF\SENNOSIDES\SENNOSIDES A AND B
  19. XARELTO [Suspect]
     Active Substance: RIVAROXABAN
     Indication: ATRIAL FIBRILLATION
     Route: 048
     Dates: start: 20150516, end: 20150520
  20. MVI [Concomitant]
     Active Substance: VITAMINS

REACTIONS (3)
  - Gastrointestinal haemorrhage [None]
  - Fatigue [None]
  - Asthenia [None]

NARRATIVE: CASE EVENT DATE: 20150520
